FAERS Safety Report 24147239 (Version 3)
Quarter: 2024Q4

REPORT INFORMATION
  Report Type: Spontaneous
  Country: US (occurrence: US)
  Receive Date: 20240729
  Receipt Date: 20241122
  Transmission Date: 20250114
  Serious: No
  Sender: PFIZER
  Company Number: US-PFIZER INC-202400077892

PATIENT
  Age: 13 Year
  Sex: Male
  Weight: 40.37 kg

DRUGS (2)
  1. GENOTROPIN [Suspect]
     Active Substance: SOMATROPIN
     Indication: Short stature
     Dosage: 1.6MG DAILY
     Route: 058
     Dates: start: 20240301
  2. GENOTROPIN [Suspect]
     Active Substance: SOMATROPIN
     Indication: Growth hormone deficiency

REACTIONS (3)
  - Device mechanical issue [Unknown]
  - Incorrect dose administered by device [Unknown]
  - Poor quality device used [Unknown]
